FAERS Safety Report 17431456 (Version 1)
Quarter: 2020Q1

REPORT INFORMATION
  Report Type: Spontaneous
  Country: BR (occurrence: BR)
  Receive Date: 20200218
  Receipt Date: 20200218
  Transmission Date: 20200409
  Serious: Yes (Hospitalization)
  Sender: FDA-Public Use
  Company Number: BR-B.I. PHARMACEUTICALS,INC./RIDGEFIELD-2020-BI-008297

PATIENT
  Age: 2 Year
  Sex: Female
  Weight: 20 kg

DRUGS (4)
  1. DESLORATADINA [Suspect]
     Active Substance: DESLORATADINE
     Indication: PRODUCT USED FOR UNKNOWN INDICATION
     Route: 048
  2. ATROVENT [Suspect]
     Active Substance: IPRATROPIUM BROMIDE
     Indication: SECRETION DISCHARGE
     Route: 048
     Dates: start: 20200210, end: 20200210
  3. ATROVENT [Suspect]
     Active Substance: IPRATROPIUM BROMIDE
     Route: 065
  4. BEROTEC [Suspect]
     Active Substance: FENOTEROL HYDROBROMIDE
     Indication: SECRETION DISCHARGE
     Route: 048
     Dates: start: 20200210, end: 20200210

REACTIONS (4)
  - Tachycardia [Not Recovered/Not Resolved]
  - Tachypnoea [Recovered/Resolved]
  - Accidental exposure to product by child [Recovered/Resolved]
  - Vomiting [Recovered/Resolved]

NARRATIVE: CASE EVENT DATE: 20200210
